FAERS Safety Report 18213138 (Version 1)
Quarter: 2020Q3

REPORT INFORMATION
  Report Type: Spontaneous
  Country: CA (occurrence: CA)
  Receive Date: 20200831
  Receipt Date: 20200831
  Transmission Date: 20201103
  Serious: Yes (Other)
  Sender: FDA-Public Use
  Company Number: CA-CELGENEUS-CAN-20200806346

PATIENT
  Sex: Female

DRUGS (1)
  1. REVLIMID [Suspect]
     Active Substance: LENALIDOMIDE
     Indication: PLASMA CELL MYELOMA
     Dosage: 5 MILLIGRAM
     Route: 048
     Dates: start: 20200511, end: 20200807

REACTIONS (5)
  - Oropharyngeal discomfort [Unknown]
  - Sciatica [Unknown]
  - Epistaxis [Unknown]
  - Unevaluable event [Unknown]
  - Pharyngeal haemorrhage [Unknown]

NARRATIVE: CASE EVENT DATE: 2020
